FAERS Safety Report 5067858-7 (Version None)
Quarter: 2006Q3

REPORT INFORMATION
  Report Type: 
  Country: None (occurrence: None)
  Receive Date: 20060728
  Receipt Date: 20060713
  Transmission Date: 20061208
  Serious: No
  Sender: FDA-Public Use
  Company Number: CN200607002258

PATIENT
  Age: 85 Year
  Sex: Female
  Weight: 40 kg

DRUGS (2)
  1. ZYPREXA [Suspect]
     Indication: SENILE PSYCHOSIS
     Dosage: 5 MG DAILY (1/D) ORAL
     Route: 048
     Dates: start: 20060514, end: 20060713
  2. RISPERIDONE [Concomitant]

REACTIONS (2)
  - ECCHYMOSIS [None]
  - PLATELET COUNT DECREASED [None]
